FAERS Safety Report 11266205 (Version 3)
Quarter: 2015Q4

REPORT INFORMATION
  Report Type: Spontaneous
  Country: JP (occurrence: JP)
  Receive Date: 20150713
  Receipt Date: 20151230
  Transmission Date: 20160304
  Serious: Yes (Death, Life-Threatening)
  Sender: FDA-Public Use
  Company Number: JP-009507513-1507JPN004888

PATIENT
  Age: 96 Year
  Sex: Female
  Weight: 40.5 kg

DRUGS (11)
  1. DIAZOXIDE CAPSULES 25 MG ^MSD^ [Suspect]
     Active Substance: DIAZOXIDE
     Dosage: 150MG, TID
     Route: 048
     Dates: start: 20150622, end: 20150624
  2. CRAVIT [Concomitant]
     Active Substance: LEVOFLOXACIN
     Indication: URINARY TRACT INFECTION
     Dosage: 500 MG, QD
     Route: 048
     Dates: start: 20150703, end: 20150706
  3. DIAZOXIDE CAPSULES 25 MG ^MSD^ [Suspect]
     Active Substance: DIAZOXIDE
     Indication: HYPOGLYCAEMIA
     Dosage: 50 MG, TID
     Dates: start: 20150704, end: 20150706
  4. DIAZOXIDE CAPSULES 25 MG ^MSD^ [Suspect]
     Active Substance: DIAZOXIDE
     Dosage: 75/75/100MG
     Route: 048
     Dates: start: 20150627, end: 20150629
  5. DIAZOXIDE CAPSULES 25 MG ^MSD^ [Suspect]
     Active Substance: DIAZOXIDE
     Dosage: 75MG,TID
     Route: 048
     Dates: start: 20150630, end: 20150630
  6. DEXTROSE. [Concomitant]
     Active Substance: DEXTROSE
     Indication: ANAEMIA
     Dosage: 50 ML, QD
     Route: 041
     Dates: start: 20150625, end: 20150629
  7. FESIN [Concomitant]
     Active Substance: IRON SUCROSE
     Indication: ANAEMIA
     Dosage: 40 MG, QD
     Route: 041
     Dates: start: 20150625, end: 20150629
  8. DIAZOXIDE CAPSULES 25 MG ^MSD^ [Suspect]
     Active Substance: DIAZOXIDE
     Dosage: 25/50/50
     Dates: start: 20150703, end: 20150703
  9. DIAZOXIDE CAPSULES 25 MG ^MSD^ [Suspect]
     Active Substance: DIAZOXIDE
     Dosage: 50MG, TID
     Route: 048
     Dates: start: 20150701, end: 20150702
  10. DIAZOXIDE CAPSULES 25 MG ^MSD^ [Suspect]
     Active Substance: DIAZOXIDE
     Dosage: 50/75/75MG
     Route: 048
     Dates: start: 20150625, end: 20150626
  11. ISOTONIC SODIUM CHLORIDE BIOSEL [Concomitant]
     Indication: THROMBOCYTOPENIA
     Dosage: 100 ML, QD
     Route: 041
     Dates: start: 20150710, end: 20150715

REACTIONS (2)
  - Cardiac failure [Fatal]
  - Platelet count decreased [Recovered/Resolved]

NARRATIVE: CASE EVENT DATE: 20150706
